FAERS Safety Report 8153881-2 (Version None)
Quarter: 2012Q1

REPORT INFORMATION
  Report Type: 
  Country: None (occurrence: None)
  Receive Date: 20120221
  Receipt Date: 20120208
  Transmission Date: 20120608
  Serious: Yes (Hospitalization)
  Sender: FDA-Public Use
  Company Number: ES-ELI_LILLY_AND_COMPANY-ES201202002444

PATIENT
  Sex: Female
  Weight: 82 kg

DRUGS (5)
  1. ACETAMINOPHEN [Concomitant]
     Indication: ANALGESIC THERAPY
     Dosage: 1 DF, EVERY 8 HRS
     Route: 048
  2. NOLOTIL [Concomitant]
     Indication: ANALGESIC THERAPY
     Dosage: 1 DF, EVERY 6 HRS
     Route: 048
  3. FERROUS SULFATE TAB [Concomitant]
     Indication: IRON DEFICIENCY ANAEMIA
     Dosage: 1 DF, QD
     Route: 048
  4. ENOXAPARIN SODIUM [Concomitant]
     Indication: ANTICOAGULANT THERAPY
     Dosage: 1 DF, QD
     Route: 058
  5. FORTEO [Suspect]
     Indication: OSTEOPOROSIS
     Dosage: 20 UG, QD
     Route: 058
     Dates: start: 20100505

REACTIONS (2)
  - FALL [None]
  - FEMUR FRACTURE [None]
